FAERS Safety Report 6772782-5 (Version None)
Quarter: 2010Q2

REPORT INFORMATION
  Report Type: 
  Country: None (occurrence: None)
  Receive Date: 20100616
  Receipt Date: 20100603
  Transmission Date: 20101027
  Serious: Yes (Other)
  Sender: FDA-Public Use
  Company Number: CH-ELI_LILLY_AND_COMPANY-CH201006001463

PATIENT
  Sex: Male

DRUGS (2)
  1. FLUCTINE [Suspect]
     Indication: DEPRESSION
     Dosage: 20 MG, UNKNOWN
     Route: 065
  2. FLUCTINE [Suspect]
     Dosage: 60 MG, UNKNOWN
     Route: 065

REACTIONS (1)
  - HOMICIDE [None]
